FAERS Safety Report 12876659 (Version 1)
Quarter: 2016Q4

REPORT INFORMATION
  Report Type: Spontaneous
  Country: FI (occurrence: FI)
  Receive Date: 20161024
  Receipt Date: 20161024
  Transmission Date: 20170207
  Serious: Yes (Other)
  Sender: FDA-Public Use
  Company Number: FI-BAYER-2016-183359

PATIENT
  Age: 27 Year
  Sex: Female

DRUGS (1)
  1. MIRENA [Suspect]
     Active Substance: LEVONORGESTREL
     Dosage: 20 MCG/24HR, CONT
     Route: 015
     Dates: start: 201310, end: 2016

REACTIONS (8)
  - Amenorrhoea [None]
  - Genital haemorrhage [Recovering/Resolving]
  - Nausea [None]
  - Pregnancy with contraceptive device [None]
  - Haemorrhage in pregnancy [None]
  - Drug ineffective [None]
  - Device expulsion [None]
  - Hypovolaemic shock [Recovering/Resolving]

NARRATIVE: CASE EVENT DATE: 201310
